FAERS Safety Report 9797997 (Version 3)
Quarter: 2014Q1

REPORT INFORMATION
  Report Type: Spontaneous
  Country: TW (occurrence: TW)
  Receive Date: 20140106
  Receipt Date: 20140227
  Transmission Date: 20141002
  Serious: Yes (Hospitalization)
  Sender: FDA-Public Use
  Company Number: PHHY2014TW000507

PATIENT
  Age: 64 Year
  Sex: Female

DRUGS (3)
  1. MIACALCIC [Suspect]
     Indication: BACK PAIN
     Dosage: 50 IU, UNK
     Route: 042
     Dates: start: 20131223, end: 20131223
  2. MIACALCIC [Suspect]
     Indication: OSTEOPOROSIS
  3. MIACALCIC [Suspect]
     Indication: OFF LABEL USE

REACTIONS (9)
  - Electrocardiogram abnormal [Recovered/Resolved]
  - Blood pressure increased [Recovered/Resolved]
  - Hypersensitivity [Recovered/Resolved]
  - Generalised erythema [Recovered/Resolved]
  - Pruritus generalised [Recovered/Resolved]
  - Palpitations [Recovering/Resolving]
  - Peripheral coldness [Recovering/Resolving]
  - Vomiting [Recovering/Resolving]
  - Dyspnoea [Not Recovered/Not Resolved]
